FAERS Safety Report 25320408 (Version 1)
Quarter: 2025Q2

REPORT INFORMATION
  Report Type: Spontaneous
  Country: ES (occurrence: ES)
  Receive Date: 20250515
  Receipt Date: 20250515
  Transmission Date: 20250717
  Serious: Yes (Other)
  Sender: MYLAN
  Company Number: None

PATIENT
  Age: 73 Year
  Sex: Female

DRUGS (8)
  1. ZOLEDRONIC ACID [Interacting]
     Active Substance: ZOLEDRONIC ACID
     Indication: Osteoporosis
     Dosage: 5 MILLIGRAM, QY (INJECTABLE PERFUSION 5 ML)
     Dates: start: 20250103, end: 20250103
  2. ZOLEDRONIC ACID [Interacting]
     Active Substance: ZOLEDRONIC ACID
     Dosage: 5 MILLIGRAM, QY (INJECTABLE PERFUSION 5 ML)
     Route: 042
     Dates: start: 20250103, end: 20250103
  3. ZOLEDRONIC ACID [Interacting]
     Active Substance: ZOLEDRONIC ACID
     Dosage: 5 MILLIGRAM, QY (INJECTABLE PERFUSION 5 ML)
     Route: 042
     Dates: start: 20250103, end: 20250103
  4. ZOLEDRONIC ACID [Interacting]
     Active Substance: ZOLEDRONIC ACID
     Dosage: 5 MILLIGRAM, QY (INJECTABLE PERFUSION 5 ML)
     Dates: start: 20250103, end: 20250103
  5. PROLIA [Interacting]
     Active Substance: DENOSUMAB
     Indication: Osteoporosis
  6. PROLIA [Interacting]
     Active Substance: DENOSUMAB
     Route: 058
  7. PROLIA [Interacting]
     Active Substance: DENOSUMAB
     Route: 058
  8. PROLIA [Interacting]
     Active Substance: DENOSUMAB

REACTIONS (3)
  - Tenosynovitis [Recovering/Resolving]
  - Polyarthritis [Recovering/Resolving]
  - Drug interaction [Unknown]

NARRATIVE: CASE EVENT DATE: 20250104
